FAERS Safety Report 14149586 (Version 1)
Quarter: 2017Q4

REPORT INFORMATION
  Report Type: Spontaneous
  Country: CA (occurrence: CA)
  Receive Date: 20171101
  Receipt Date: 20171101
  Transmission Date: 20180321
  Serious: Yes (Death, Hospitalization)
  Sender: FDA-Public Use
  Company Number: None

PATIENT
  Age: 90 Year
  Sex: Female
  Weight: 54 kg

DRUGS (1)
  1. ORIGINAL EXTRA STRONG ALL NATURAL FISHERMANS FRIEND MENTHOL COUGH SUPPRESSANT [Suspect]
     Active Substance: MENTHOL
     Indication: RESPIRATORY DISORDER
     Dates: start: 20111101, end: 20170101

REACTIONS (5)
  - Joint swelling [None]
  - Inappropriate schedule of drug administration [None]
  - Hypertension [None]
  - Incorrect dose administered [None]
  - Cerebrovascular accident [None]

NARRATIVE: CASE EVENT DATE: 20170516
